FAERS Safety Report 18243033 (Version 1)
Quarter: 2020Q3

REPORT INFORMATION
  Report Type: Spontaneous
  Country: US (occurrence: US)
  Receive Date: 20200908
  Receipt Date: 20200908
  Transmission Date: 20201103
  Serious: Yes (Other)
  Sender: FDA-Public Use
  Company Number: US-ALLERGAN-2034011US

PATIENT

DRUGS (2)
  1. TIMOLOL UNK [Suspect]
     Active Substance: TIMOLOL
     Indication: OPEN ANGLE GLAUCOMA
     Dosage: UNK, BID
     Route: 047
  2. TIMOLOL UNK [Suspect]
     Active Substance: TIMOLOL
     Indication: OCULAR HYPERTENSION

REACTIONS (1)
  - Atrial fibrillation [Unknown]
